FAERS Safety Report 8107247-1 (Version None)
Quarter: 2012Q1

REPORT INFORMATION
  Report Type: 
  Country: None (occurrence: None)
  Receive Date: 20120202
  Receipt Date: 20120120
  Transmission Date: 20120608
  Serious: Yes (Other)
  Sender: FDA-Public Use
  Company Number: JP-NAPPMUNDI-MAG-2012-0002019

PATIENT
  Age: 31 Year
  Sex: Female

DRUGS (1)
  1. BUPRENORPHINE [Suspect]
     Indication: ANALGESIC THERAPY
     Dosage: 5 MCG, Q1H
     Route: 062
     Dates: start: 20120106, end: 20120108

REACTIONS (4)
  - APPLICATION SITE VESICLES [None]
  - NAUSEA [None]
  - HAEMATEMESIS [None]
  - VOMITING [None]
